FAERS Safety Report 5979269-8 (Version None)
Quarter: 2008Q4

REPORT INFORMATION
  Report Type: 
  Country: None (occurrence: None)
  Receive Date: 20081204
  Receipt Date: 20081103
  Transmission Date: 20090506
  Serious: No
  Sender: FDA-Public Use
  Company Number: US-ABBOTT-08P-163-0483978-00

PATIENT
  Sex: Female

DRUGS (5)
  1. TRICOR [Suspect]
     Indication: BLOOD TRIGLYCERIDES INCREASED
     Route: 048
     Dates: start: 20081017, end: 20081024
  2. TRICOR [Suspect]
     Indication: BLOOD CHOLESTEROL INCREASED
  3. PREMERIN [Concomitant]
     Indication: DRUG USE FOR UNKNOWN INDICATION
  4. MELOXICAN [Concomitant]
     Indication: DRUG USE FOR UNKNOWN INDICATION
  5. ESCITALOPRAM OXALATE [Concomitant]
     Indication: DRUG USE FOR UNKNOWN INDICATION

REACTIONS (11)
  - ASTHENIA [None]
  - BACK PAIN [None]
  - CHEST PAIN [None]
  - FATIGUE [None]
  - FEELING ABNORMAL [None]
  - HEADACHE [None]
  - MUSCULAR WEAKNESS [None]
  - MYALGIA [None]
  - NONSPECIFIC REACTION [None]
  - PALPITATIONS [None]
  - PARAESTHESIA [None]
